FAERS Safety Report 6611432-5 (Version None)
Quarter: 2010Q1

REPORT INFORMATION
  Report Type: 
  Country: None (occurrence: None)
  Receive Date: 20100218
  Receipt Date: 20091102
  Transmission Date: 20100710
  Serious: No
  Sender: FDA-Public Use
  Company Number: WAES 0906USA00349

PATIENT
  Age: 33 Year
  Sex: Male

DRUGS (3)
  1. ISENTRESS [Suspect]
     Indication: HIV INFECTION
     Dosage: 400 MG/BID/PO
     Route: 048
     Dates: start: 20090508
  2. SUSTIVA [Concomitant]
  3. TRUVADA [Concomitant]

REACTIONS (5)
  - APHTHOUS STOMATITIS [None]
  - DEPRESSED MOOD [None]
  - FEELING ABNORMAL [None]
  - HYPERHIDROSIS [None]
  - NIGHT SWEATS [None]
